FAERS Safety Report 4627555-6 (Version None)
Quarter: 2005Q2

REPORT INFORMATION
  Report Type: 
  Country: None (occurrence: None)
  Receive Date: 20050405
  Receipt Date: 20050322
  Transmission Date: 20051028
  Serious: Yes (Other)
  Sender: FDA-Public Use
  Company Number: 2005048898

PATIENT
  Age: 54 Year
  Sex: Female
  Weight: 59.8748 kg

DRUGS (5)
  1. NEURONTIN [Suspect]
     Indication: FIBROMYALGIA
     Dosage: SEE IMAGE
     Dates: start: 20040101
  2. OLOPATADINE HYDROCHLORIDE (OLOPATADINE HYDROCHLORIDE) [Concomitant]
  3. LANSOPRAZOLE [Concomitant]
  4. LIDOCAINE [Concomitant]
  5. CARISOPRODOL [Concomitant]

REACTIONS (9)
  - COLD SWEAT [None]
  - CONFUSIONAL STATE [None]
  - DRUG INEFFECTIVE [None]
  - FEAR [None]
  - FEELING ABNORMAL [None]
  - GALLBLADDER OPERATION [None]
  - INCISION SITE COMPLICATION [None]
  - PARANOIA [None]
  - REACTION TO MEDICAL AGENT PRESERVATIVES [None]
